FAERS Safety Report 13608882 (Version 1)
Quarter: 2017Q2

REPORT INFORMATION
  Report Type: Spontaneous
  Country: TR (occurrence: TR)
  Receive Date: 20170602
  Receipt Date: 20170602
  Transmission Date: 20170830
  Serious: Yes (Hospitalization)
  Sender: FDA-Public Use
  Company Number: TR-FTV20160625-01

PATIENT
  Age: 30 Year
  Sex: Female

DRUGS (2)
  1. LANSOR [Concomitant]
     Active Substance: LANSOPRAZOLE
     Route: 048
  2. FACTIVE [Suspect]
     Active Substance: GEMIFLOXACIN MESYLATE
     Route: 048
     Dates: start: 20160619, end: 20160623

REACTIONS (2)
  - Rash pustular [Recovered/Resolved]
  - Blister [Recovered/Resolved]

NARRATIVE: CASE EVENT DATE: 20160624
